FAERS Safety Report 8113281-8 (Version None)
Quarter: 2012Q1

REPORT INFORMATION
  Report Type: 
  Country: None (occurrence: None)
  Receive Date: 20120203
  Receipt Date: 20120123
  Transmission Date: 20120608
  Serious: Yes (Other)
  Sender: FDA-Public Use
  Company Number: US-PERRIGO-11US011296

PATIENT
  Age: 50 Year
  Sex: Female
  Weight: 61.224 kg

DRUGS (4)
  1. PERMETHRIN [Suspect]
     Indication: ACARODERMATITIS
     Dosage: 1 APPLICATION, FROM BASE OF NECK TO SOLES OF FEET
     Route: 061
     Dates: start: 20111116, end: 20111117
  2. PERMETHRIN [Suspect]
     Dosage: 1 APPLICATION, MASSAGED FROM SCALP TO SOLES OF FEET
     Route: 061
     Dates: start: 20111127, end: 20111128
  3. PERMETHRIN [Suspect]
     Dosage: 1 APPLICATION, MASSAGED FROM SCALP TO SOLES OF FEET
     Route: 061
     Dates: start: 20111204, end: 20111205
  4. IVERMECTIN [Concomitant]
     Indication: ACARODERMATITIS
     Dosage: UNK
     Route: 048
     Dates: start: 20111122, end: 20111122

REACTIONS (7)
  - INAPPROPRIATE SCHEDULE OF DRUG ADMINISTRATION [None]
  - HYPERAESTHESIA [None]
  - CRANIAL NERVE DISORDER [None]
  - HYPOACUSIS [None]
  - HYPERSENSITIVITY [None]
  - TINNITUS [None]
  - NEUROTOXICITY [None]
